FAERS Safety Report 23388850 (Version 1)
Quarter: 2024Q1

REPORT INFORMATION
  Report Type: Spontaneous
  Country: CN (occurrence: CN)
  Receive Date: 20240110
  Receipt Date: 20240110
  Transmission Date: 20240410
  Serious: Yes (Other)
  Sender: FDA-Public Use
  Company Number: CN-Eisai-EC-2024-156418

PATIENT
  Age: 69 Year
  Sex: Female
  Weight: 45.9 kg

DRUGS (3)
  1. LENVIMA [Suspect]
     Active Substance: LENVATINIB
     Indication: Hepatocellular carcinoma
     Route: 048
     Dates: start: 20231124, end: 20231126
  2. LENVIMA [Suspect]
     Active Substance: LENVATINIB
     Route: 048
     Dates: start: 20231127, end: 20231130
  3. SINTILIMAB [Concomitant]
     Active Substance: SINTILIMAB
     Indication: Hepatocellular carcinoma
     Route: 041
     Dates: start: 20231124, end: 20231127

REACTIONS (2)
  - Rash [Recovering/Resolving]
  - Pruritus [Recovering/Resolving]

NARRATIVE: CASE EVENT DATE: 20231127
